FAERS Safety Report 25618061 (Version 2)
Quarter: 2025Q3

REPORT INFORMATION
  Report Type: Spontaneous
  Country: US (occurrence: US)
  Receive Date: 20250729
  Receipt Date: 20250902
  Transmission Date: 20251021
  Serious: No
  Sender: ROCHE
  Company Number: US-ROCHE-10000344484

PATIENT
  Age: 24 Year
  Sex: Female
  Weight: 108.86 kg

DRUGS (4)
  1. XOLAIR [Suspect]
     Active Substance: OMALIZUMAB
     Indication: Chronic spontaneous urticaria
     Dosage: GEST 1- 150 MG SHOT IN EACH ARM
     Route: 058
     Dates: start: 202111, end: 202505
  2. ZYRTEC [Concomitant]
     Active Substance: CETIRIZINE HYDROCHLORIDE
     Indication: Chronic spontaneous urticaria
     Dosage: STARTED 6 TO 8 MONTHS BEFORE STARTING XOLAIR. TAKES AS NEEDED.
     Route: 048
  3. EXCEDRIN EXTRA STRENGTH [Concomitant]
     Active Substance: ACETAMINOPHEN\ASPIRIN\CAFFEINE
     Indication: Headache
     Dosage: TAKES AS NEEDED FOR HEADACHES. STARTED AFTER SHE WAS ON XOLAIR.
     Route: 048
  4. IBUPROFEN [Concomitant]
     Active Substance: IBUPROFEN
     Indication: Headache
     Dosage: STARTED SINCE HIGH SCHOOL ABOUT 10 YEARS AGO.
     Route: 048

REACTIONS (4)
  - Headache [Recovered/Resolved]
  - Vomiting [Recovered/Resolved]
  - Diarrhoea [Recovered/Resolved]
  - Head discomfort [Recovered/Resolved]

NARRATIVE: CASE EVENT DATE: 20250501
